FAERS Safety Report 8419033-3 (Version None)
Quarter: 2012Q2

REPORT INFORMATION
  Report Type: 
  Country: None (occurrence: None)
  Receive Date: 20120607
  Receipt Date: 20120604
  Transmission Date: 20120825
  Serious: Yes (Life-Threatening, Hospitalization)
  Sender: FDA-Public Use
  Company Number: PHHY2012PL034213

PATIENT
  Sex: Male
  Weight: 70 kg

DRUGS (4)
  1. CERTICAN [Suspect]
     Indication: HEART TRANSPLANT
     Dosage: 0.25 MG, BID
     Route: 048
     Dates: start: 20120411, end: 20120419
  2. ATORVASTATIN CALCIUM [Concomitant]
     Indication: HEART TRANSPLANT
     Dosage: 10 MG, QD
     Route: 048
     Dates: start: 20120212, end: 20120507
  3. CELLCEPT [Concomitant]
     Indication: IMMUNOSUPPRESSION
     Dosage: 500 MG, BID
     Route: 048
     Dates: start: 20120302
  4. VALCYTE [Concomitant]
     Indication: CYTOMEGALOVIRUS INFECTION
     Dosage: 450 MG, ONCE A WEEK
     Route: 048
     Dates: start: 20120302

REACTIONS (5)
  - RESPIRATORY FAILURE [None]
  - LUNG INFECTION [None]
  - PNEUMONIA [None]
  - C-REACTIVE PROTEIN INCREASED [None]
  - LEUKOPENIA [None]
